FAERS Safety Report 5533262-8 (Version None)
Quarter: 2007Q4

REPORT INFORMATION
  Report Type: 
  Country: None (occurrence: None)
  Receive Date: 20071204
  Receipt Date: 20071127
  Transmission Date: 20080405
  Serious: Yes (Hospitalization)
  Sender: FDA-Public Use
  Company Number: B0495389A

PATIENT
  Age: 47 Year
  Sex: Male

DRUGS (1)
  1. FLUTICASONE PROPIONATE [Suspect]
     Indication: ASTHMA
     Dosage: 250MCG TWICE PER DAY
     Route: 055
     Dates: start: 20071016

REACTIONS (4)
  - CHEST PAIN [None]
  - DYSPNOEA [None]
  - MUSCLE STRAIN [None]
  - SYNCOPE [None]
